FAERS Safety Report 7815987-4 (Version None)
Quarter: 2011Q4

REPORT INFORMATION
  Report Type: 
  Country: None (occurrence: None)
  Receive Date: 20111014
  Receipt Date: 20110925
  Transmission Date: 20120403
  Serious: Yes (Life-Threatening)
  Sender: FDA-Public Use
  Company Number: DZ-ROCHE-1001405

PATIENT
  Sex: Female

DRUGS (1)
  1. MABTHERA [Suspect]
     Indication: RHEUMATOID ARTHRITIS
     Route: 042

REACTIONS (5)
  - HYPERTENSION [None]
  - CHILLS [None]
  - HYPOTENSION [None]
  - HYPERSENSITIVITY [None]
  - HEADACHE [None]
